FAERS Safety Report 7166478-8 (Version None)
Quarter: 2010Q4

REPORT INFORMATION
  Report Type: 
  Country: None (occurrence: None)
  Receive Date: 20101216
  Receipt Date: 20101209
  Transmission Date: 20110411
  Serious: Yes (Hospitalization, Other)
  Sender: FDA-Public Use
  Company Number: PHHY2010DE83861

PATIENT
  Sex: Male

DRUGS (4)
  1. DIOVAN TRIPLE DTR+ [Suspect]
     Indication: HYPERTENSION
     Dosage: 5/160/12.5 MG PER DAY
     Route: 048
     Dates: start: 20091217, end: 20100304
  2. DIOVAN TRIPLE DTR+ [Suspect]
     Dosage: 10-160-12.5 MG PER DAY
     Route: 048
     Dates: start: 20100305, end: 20100317
  3. SIMVASTATIN [Concomitant]
     Dosage: 20 MG PER DAY
  4. METFORMIN HCL [Concomitant]
     Dosage: 850 MG PER DAY

REACTIONS (1)
  - CORONARY ARTERY BYPASS [None]
